FAERS Safety Report 8836644 (Version 1)
Quarter: 2012Q4

REPORT INFORMATION
  Report Type: Spontaneous
  Country: US (occurrence: None)
  Receive Date: 20121010
  Receipt Date: 20121010
  Transmission Date: 20130627
  Serious: Yes (Hospitalization, Other)
  Sender: FDA-Public Use
  Company Number: TPA2012A07451

PATIENT
  Age: 85 Year
  Sex: Female

DRUGS (2)
  1. ACTOS (PIOGLITAZONE HYDROCHLORIDE) [Suspect]
     Indication: TYPE 2 DIABETES MELLITUS
     Route: 048
     Dates: end: 20120326
  2. NEURONTIN (GABAPENTIN) [Concomitant]

REACTIONS (2)
  - Renal failure [None]
  - Coma [None]
